APPROVED DRUG PRODUCT: METHYCLOTHIAZIDE
Active Ingredient: METHYCLOTHIAZIDE
Strength: 5MG
Dosage Form/Route: TABLET;ORAL
Application: A088745 | Product #001
Applicant: USL PHARMA INC
Approved: Mar 21, 1985 | RLD: No | RS: No | Type: DISCN